FAERS Safety Report 8851376 (Version 2)
Quarter: 2012Q4

REPORT INFORMATION
  Report Type: 
  Country: CA (occurrence: CA)
  Receive Date: 20121022
  Receipt Date: 20121125
  Transmission Date: 20130627
  Serious: Yes (Hospitalization, Other)
  Sender: FDA-Public Use
  Company Number: CA-AMGEN-CANSP2012065791

PATIENT
  Sex: Female

DRUGS (6)
  1. PROLIA [Suspect]
     Indication: OSTEOPOROSIS
     Dosage: 60 mg, one time dose
     Route: 058
     Dates: start: 201204, end: 201204
  2. NOVORAPID [Concomitant]
     Indication: DIABETES MELLITUS
     Dosage: 5 unit, tid
     Route: 058
  3. METOPROLOL [Concomitant]
     Dosage: 50 mg, bid
     Route: 048
  4. LEVEMIR [Concomitant]
     Dosage: 5 unit, qhs
     Route: 058
  5. PREDNISONE [Concomitant]
     Indication: RHEUMATIC DISORDER
     Dosage: 2.5 mg, qd
     Route: 048
  6. ASA [Concomitant]
     Dosage: 80 mg, qd
     Route: 048

REACTIONS (2)
  - Convulsion [Not Recovered/Not Resolved]
  - Cognitive disorder [Unknown]
